FAERS Safety Report 12597643 (Version 1)
Quarter: 2016Q3

REPORT INFORMATION
  Report Type: Spontaneous
  Country: HR (occurrence: HR)
  Receive Date: 20160726
  Receipt Date: 20160726
  Transmission Date: 20161109
  Serious: Yes (Other)
  Sender: FDA-Public Use
  Company Number: PHHY2016HR098168

PATIENT
  Age: 15 Year
  Sex: Female

DRUGS (3)
  1. LOQUEN [Suspect]
     Active Substance: QUETIAPINE FUMARATE
     Indication: PRODUCT USED FOR UNKNOWN INDICATION
     Dosage: 80 TBL
     Route: 048
     Dates: start: 20160105, end: 20160105
  2. PORTAL [Suspect]
     Active Substance: FLUOXETINE HYDROCHLORIDE
     Indication: PRODUCT USED FOR UNKNOWN INDICATION
     Dosage: 20 CAPS
     Route: 048
     Dates: start: 20160105, end: 20160105
  3. RISPERIDONE. [Suspect]
     Active Substance: RISPERIDONE
     Indication: PRODUCT USED FOR UNKNOWN INDICATION
     Dosage: 28 TBL
     Route: 048
     Dates: start: 20160105, end: 20160105

REACTIONS (3)
  - Suicide attempt [Unknown]
  - Tachycardia [Unknown]
  - Intentional overdose [Unknown]

NARRATIVE: CASE EVENT DATE: 201601
